FAERS Safety Report 8771106 (Version 1)
Quarter: 2012Q4

REPORT INFORMATION
  Report Type: Report from Study
  Country: AT (occurrence: AT)
  Receive Date: 20120906
  Receipt Date: 20120906
  Transmission Date: 20130627
  Serious: Yes (Hospitalization)
  Sender: FDA-Public Use
  Company Number: AT-ROCHE-1106814

PATIENT

DRUGS (2)
  1. XELODA [Suspect]
     Indication: COLON CANCER
     Route: 065
  2. OXALIPLATIN [Suspect]
     Indication: COLON CANCER

REACTIONS (2)
  - Colon operation [Recovered/Resolved]
  - Large intestine perforation [Recovered/Resolved]
